FAERS Safety Report 4666690-3 (Version None)
Quarter: 2005Q2

REPORT INFORMATION
  Report Type: 
  Country: None (occurrence: None)
  Receive Date: 20050518
  Receipt Date: 20050505
  Transmission Date: 20051028
  Serious: Yes (Hospitalization)
  Sender: FDA-Public Use
  Company Number: HQWYE588306MAY05

PATIENT
  Age: 37 Year

DRUGS (3)
  1. RAPAMUNE [Suspect]
     Indication: IMMUNOSUPPRESSANT DRUG THERAPY
     Dosage: 4 MG 1X PER 1 DAY
     Dates: start: 20030925, end: 20030101
  2. MYCOPHENOLATE MOFETIL (MYCOPHENOLATE MOFETIL) [Concomitant]
  3. PREDNISONE [Concomitant]

REACTIONS (10)
  - BLOOD PRESSURE INADEQUATELY CONTROLLED [None]
  - COMPLICATIONS OF TRANSPLANTED KIDNEY [None]
  - EPISTAXIS [None]
  - HAEMATOMA [None]
  - HAEMATURIA [None]
  - HAEMOGLOBIN DECREASED [None]
  - HAEMOLYSIS [None]
  - RENAL IMPAIRMENT [None]
  - THROMBOCYTOPENIA [None]
  - THROMBOTIC MICROANGIOPATHY [None]
